FAERS Safety Report 9741417 (Version 1)
Quarter: 2013Q4

REPORT INFORMATION
  Report Type: Spontaneous
  Country: GB (occurrence: GB)
  Receive Date: 20131209
  Receipt Date: 20131209
  Transmission Date: 20140711
  Serious: Yes (Other)
  Sender: FDA-Public Use
  Company Number: PHFR2013GB006943

PATIENT
  Sex: Male

DRUGS (4)
  1. TEGRETOL [Suspect]
     Indication: ANXIETY
     Dosage: 400 MG, BID (TWO A DAY )
     Route: 048
  2. TEGRETOL [Suspect]
     Dosage: 400 MG, QD (ONE A DAY)
     Route: 048
  3. LANSOPRAZOL [Concomitant]
     Indication: DYSPEPSIA
  4. PENICILLIN [Concomitant]

REACTIONS (3)
  - Alcoholic hangover [Unknown]
  - Blood test abnormal [Unknown]
  - Fatigue [Unknown]
